FAERS Safety Report 8072993-5 (Version None)
Quarter: 2012Q1

REPORT INFORMATION
  Report Type: 
  Country: None (occurrence: None)
  Receive Date: 20120126
  Receipt Date: 20120118
  Transmission Date: 20120608
  Serious: Yes (Hospitalization)
  Sender: FDA-Public Use
  Company Number: US-BAYER-2011-047479

PATIENT
  Age: 15 Year
  Sex: Female
  Weight: 59 kg

DRUGS (6)
  1. YAZ [Suspect]
     Indication: PREMENSTRUAL SYNDROME
  2. YAZ [Suspect]
     Indication: ACNE
  3. YAZ [Suspect]
     Indication: CONTRACEPTION
     Dosage: UNK
     Dates: start: 20080301, end: 20091201
  4. ACIPHEX [Concomitant]
     Dosage: UNK UNK, BID
  5. ONDANSETRON HCL [Concomitant]
  6. YAZ [Suspect]
     Indication: MENSTRUAL CYCLE MANAGEMENT

REACTIONS (8)
  - NAUSEA [None]
  - INJURY [None]
  - ABDOMINAL PAIN [None]
  - CHOLECYSTITIS CHRONIC [None]
  - EPIGASTRIC DISCOMFORT [None]
  - BACK PAIN [None]
  - CHOLELITHIASIS [None]
  - PAIN [None]
